FAERS Safety Report 19732268 (Version 2)
Quarter: 2021Q3

REPORT INFORMATION
  Report Type: Report from Study
  Country: None (occurrence: SE)
  Receive Date: 20210820
  Receipt Date: 20210825
  Transmission Date: 20211014
  Serious: Yes (Death, Hospitalization, Other)
  Sender: FDA-Public Use
  Company Number: SE-ABBVIE-21K-150-4048131-00

PATIENT
  Age: 77 Year
  Sex: Male

DRUGS (4)
  1. MORFINE [Concomitant]
     Active Substance: MORPHINE
     Indication: PRODUCT USED FOR UNKNOWN INDICATION
  2. DUODOPA [Suspect]
     Active Substance: CARBIDOPA\LEVODOPA
     Indication: PARKINSON^S DISEASE
     Dosage: MORNING DOSE: 3.0 ML, CONTINUOUS DOSE DAY (07.00?22.00): 3.3?ML/H
     Route: 050
     Dates: start: 20150824
  3. DUODOPA [Suspect]
     Active Substance: CARBIDOPA\LEVODOPA
     Dosage: CONTINUOUS DOSE NIGHT (22.00?07.00): 2.5 ML/H
     Route: 050
  4. MIDAZOLAM. [Concomitant]
     Active Substance: MIDAZOLAM
     Indication: PRODUCT USED FOR UNKNOWN INDICATION

REACTIONS (9)
  - Alexithymia [Unknown]
  - Weight decreased [Unknown]
  - Dysphagia [Unknown]
  - Wheelchair user [Unknown]
  - Weight fluctuation [Unknown]
  - Pneumonia [Unknown]
  - Palliative care [Unknown]
  - Death [Fatal]
  - Feeding disorder [Unknown]

NARRATIVE: CASE EVENT DATE: 2020
